FAERS Safety Report 23195308 (Version 1)
Quarter: 2023Q4

REPORT INFORMATION
  Report Type: Spontaneous
  Country: SG (occurrence: SG)
  Receive Date: 20231117
  Receipt Date: 20231117
  Transmission Date: 20240109
  Serious: Yes (Other)
  Sender: FDA-Public Use
  Company Number: SG-ALKEM LABORATORIES LIMITED-SG-ALKEM-2023-02025

PATIENT
  Age: 45 Year
  Sex: Female

DRUGS (1)
  1. OLANZAPINE [Suspect]
     Active Substance: OLANZAPINE
     Indication: Product used for unknown indication
     Dosage: 15 MILLIGRAMS (13 MONTHS)
     Route: 065

REACTIONS (3)
  - Leukopenia [Unknown]
  - Neutropenia [Unknown]
  - Haematotoxicity [Unknown]
